FAERS Safety Report 8765505 (Version 2)
Quarter: 2013Q2

REPORT INFORMATION
  Report Type: Report from Study
  Country: DE (occurrence: DE)
  Receive Date: 20120903
  Receipt Date: 20130605
  Transmission Date: 20140414
  Serious: Yes (Hospitalization)
  Sender: FDA-Public Use
  Company Number: DE-PFIZER INC-2012211447

PATIENT
  Age: 66 Year
  Sex: Male
  Weight: 97.3 kg

DRUGS (9)
  1. GENOTROPIN [Suspect]
     Indication: GROWTH HORMONE DEFICIENCY
     Dosage: 0.4 MG, 1X/DAY 7/WK
     Route: 058
     Dates: start: 20070214
  2. NEBIDO [Concomitant]
     Indication: BLOOD LUTEINISING HORMONE DECREASED
     Dosage: 1000 MG, EVERY 3 MONTHS
     Dates: start: 20060523
  3. NEBIDO [Concomitant]
     Indication: BLOOD FOLLICLE STIMULATING HORMONE DECREASED
  4. NEBIDO [Concomitant]
     Indication: HYPOGONADISM MALE
  5. L-THYROXIN [Concomitant]
     Indication: BLOOD THYROID STIMULATING HORMONE DECREASED
     Dosage: 200 1-0-0
     Dates: start: 20080508
  6. L-THYROXIN [Concomitant]
     Indication: PRIMARY HYPOTHYROIDISM
  7. OMEPRAZOL [Concomitant]
     Dosage: 20 MG, UNK
  8. HYDROCORTISON [Concomitant]
     Dosage: 10-5-0
  9. BISOPROLOL [Concomitant]

REACTIONS (1)
  - Thrombocytopenia [Recovered/Resolved]
